FAERS Safety Report 22320557 (Version 2)
Quarter: 2023Q2

REPORT INFORMATION
  Report Type: Spontaneous
  Country: US (occurrence: US)
  Receive Date: 20230515
  Receipt Date: 20230615
  Transmission Date: 20230722
  Serious: No
  Sender: FDA-Public Use
  Company Number: US-PFIZER INC-PV202300083494

PATIENT
  Age: 9 Year
  Sex: Male

DRUGS (1)
  1. GENOTROPIN [Suspect]
     Active Substance: SOMATROPIN
     Dosage: UNK UNK, ALTERNATE DAY (1.2 MG AND 1.4 MG DAILY)
     Dates: end: 202304

REACTIONS (3)
  - Pain [Unknown]
  - Discomfort [Unknown]
  - Feeling cold [Unknown]
